FAERS Safety Report 5019998-6 (Version None)
Quarter: 2006Q2

REPORT INFORMATION
  Report Type: 
  Country: None (occurrence: None)
  Receive Date: 20060602
  Receipt Date: 20060523
  Transmission Date: 20061013
  Serious: Yes (Hospitalization)
  Sender: FDA-Public Use
  Company Number: 200610678BYL

PATIENT
  Sex: Female

DRUGS (3)
  1. AVELOX [Suspect]
     Dosage: ORAL
     Route: 048
  2. TRANSAMIN [Concomitant]
  3. MARZULENE S [Concomitant]

REACTIONS (10)
  - ABDOMINAL PAIN UPPER [None]
  - ASTHENIA [None]
  - BLOOD PRESSURE INCREASED [None]
  - DEHYDRATION [None]
  - DIARRHOEA [None]
  - DYSPNOEA [None]
  - MALAISE [None]
  - SWOLLEN TONGUE [None]
  - THIRST [None]
  - TONGUE DISORDER [None]
